FAERS Safety Report 4319912-2 (Version None)
Quarter: 2004Q1

REPORT INFORMATION
  Report Type: 
  Country: None (occurrence: None)
  Receive Date: 20040316
  Receipt Date: 20040304
  Transmission Date: 20041129
  Serious: Yes (Hospitalization)
  Sender: FDA-Public Use
  Company Number: 2004UW03960

PATIENT
  Age: 74 Year
  Sex: Male
  Weight: 29.9374 kg

DRUGS (5)
  1. ELAVIL [Suspect]
     Indication: MAJOR DEPRESSION
     Dates: start: 20020101, end: 20030101
  2. AMINOFLUID [Suspect]
  3. NITRAZEPAM [Suspect]
  4. OXAZOLAM [Suspect]
  5. TRIAZOLAM [Suspect]

REACTIONS (12)
  - ANOREXIA [None]
  - CIRCULATORY COLLAPSE [None]
  - CONSTIPATION [None]
  - DECREASED ACTIVITY [None]
  - DEHYDRATION [None]
  - DEPRESSED LEVEL OF CONSCIOUSNESS [None]
  - DEPRESSION [None]
  - DRUG INEFFECTIVE [None]
  - HAEMOGLOBIN DECREASED [None]
  - MALNUTRITION [None]
  - MUSCLE ATROPHY [None]
  - MUSCULAR WEAKNESS [None]
